FAERS Safety Report 14454484 (Version 1)
Quarter: 2018Q1

REPORT INFORMATION
  Report Type: Spontaneous
  Country: US (occurrence: US)
  Receive Date: 20180128
  Receipt Date: 20180128
  Transmission Date: 20180509
  Serious: Yes (Other)
  Sender: FDA-Public Use
  Company Number: None

PATIENT
  Age: 18 Year
  Sex: Male
  Weight: 76.5 kg

DRUGS (1)
  1. INVEGA SUSTENNA [Suspect]
     Active Substance: PALIPERIDONE PALMITATE
     Indication: THINKING ABNORMAL
     Route: 030
     Dates: start: 20171106, end: 20171113

REACTIONS (11)
  - Muscular weakness [None]
  - Sexual dysfunction [None]
  - Stress [None]
  - Decreased appetite [None]
  - Loss of personal independence in daily activities [None]
  - Blood prolactin increased [None]
  - Blood testosterone decreased [None]
  - Feeling of despair [None]
  - Muscle atrophy [None]
  - Fatigue [None]
  - Disturbance in attention [None]

NARRATIVE: CASE EVENT DATE: 20180101
